FAERS Safety Report 11990561 (Version 6)
Quarter: 2016Q2

REPORT INFORMATION
  Report Type: Spontaneous
  Country: GR (occurrence: GR)
  Receive Date: 20160202
  Receipt Date: 20160407
  Transmission Date: 20160815
  Serious: Yes (Hospitalization, Other)
  Sender: FDA-Public Use
  Company Number: GR-TAKEDA-2016MPI000570

PATIENT
  Age: 71 Year
  Sex: Female
  Weight: 71 kg

DRUGS (28)
  1. DARATUMUMAB [Suspect]
     Active Substance: DARATUMUMAB
     Dosage: UNK
     Route: 042
     Dates: start: 20160114
  2. FOLIC ACID. [Concomitant]
     Active Substance: FOLIC ACID
     Indication: HAEMOLYSIS
     Dosage: UNK
     Route: 065
  3. DEXAMETHASONE. [Suspect]
     Active Substance: DEXAMETHASONE
     Indication: PLASMA CELL MYELOMA
     Dosage: 20 MG, UNK
     Route: 042
     Dates: start: 20160107
  4. DULOXETINE. [Concomitant]
     Active Substance: DULOXETINE
     Indication: ANXIETY DISORDER
     Dosage: UNK
     Route: 065
  5. DIMETINDENE [Concomitant]
     Active Substance: DIMETHINDENE
     Indication: WHEEZING
     Dosage: UNK
     Route: 065
  6. TINZAPARIN [Concomitant]
     Active Substance: TINZAPARIN
     Indication: PROPHYLAXIS
     Dosage: UNK
     Route: 065
  7. EPOETIN ALFA [Concomitant]
     Active Substance: ERYTHROPOIETIN
     Indication: PROPHYLAXIS
  8. MELPHALAN [Suspect]
     Active Substance: MELPHALAN
     Indication: PLASMA CELL MYELOMA
     Dosage: 16 MG, QD
     Route: 048
     Dates: start: 20160107
  9. CIPROFLOXACIN. [Concomitant]
     Active Substance: CIPROFLOXACIN
     Indication: CYSTITIS
     Dosage: UNK
     Route: 065
  10. PANTOPRAZOLE [Concomitant]
     Active Substance: PANTOPRAZOLE SODIUM
     Indication: GASTRITIS
     Dosage: UNK
     Route: 065
  11. EPOETIN ALFA [Concomitant]
     Active Substance: ERYTHROPOIETIN
     Indication: ANAEMIA
     Dosage: UNK
     Route: 065
  12. BUDESONIDE. [Concomitant]
     Active Substance: BUDESONIDE
     Indication: PROPHYLAXIS
     Dosage: UNK
     Route: 065
  13. FORMOTEROL [Concomitant]
     Active Substance: FORMOTEROL
     Indication: PROPHYLAXIS
     Dosage: UNK
     Route: 065
  14. HYDROCORTISONE. [Concomitant]
     Active Substance: HYDROCORTISONE
     Indication: WHEEZING
     Dosage: UNK
     Route: 065
  15. DONEPEZIL. [Concomitant]
     Active Substance: DONEPEZIL
     Indication: ANXIETY DISORDER
     Dosage: UNK
     Route: 065
  16. NEBIVOLOL. [Concomitant]
     Active Substance: NEBIVOLOL
     Indication: ANXIETY DISORDER
     Dosage: UNK
     Route: 065
  17. PREGABALIN. [Concomitant]
     Active Substance: PREGABALIN
     Indication: BONE PAIN
     Dosage: UNK
     Route: 065
  18. ZOLEDRONIC ACID [Concomitant]
     Active Substance: ZOLEDRONIC ACID
     Indication: PROPHYLAXIS
     Dosage: UNK
     Route: 065
  19. OMEPRAZOLE. [Concomitant]
     Active Substance: OMEPRAZOLE
     Indication: PROPHYLAXIS
     Dosage: UNK
     Route: 065
  20. PREDNISONE. [Suspect]
     Active Substance: PREDNISONE
     Indication: PLASMA CELL MYELOMA
     Dosage: UNK
     Route: 048
     Dates: start: 20160108
  21. RANITIDINE. [Concomitant]
     Active Substance: RANITIDINE
     Indication: WHEEZING
     Dosage: UNK
     Route: 065
  22. FUROSEMIDE. [Concomitant]
     Active Substance: FUROSEMIDE
     Dosage: UNK
     Route: 065
  23. LACTULOSE. [Concomitant]
     Active Substance: LACTULOSE
     Indication: CONSTIPATION
     Dosage: UNK
     Route: 065
  24. CALCIUM BICARBONATE [Concomitant]
     Indication: PROPHYLAXIS
     Dosage: UNK
     Route: 065
  25. VELCADE [Suspect]
     Active Substance: BORTEZOMIB
     Indication: PLASMA CELL MYELOMA
     Dosage: 2.3 MG, UNK
     Route: 058
     Dates: start: 20160107
  26. DARATUMUMAB [Suspect]
     Active Substance: DARATUMUMAB
     Indication: PLASMA CELL MYELOMA
     Dosage: 1140 MG, 1/WEEK
     Route: 042
     Dates: start: 20160107, end: 20160114
  27. ONDANSETRON [Concomitant]
     Active Substance: ONDANSETRON
     Indication: PROPHYLAXIS
     Dosage: UNK
     Route: 065
  28. VALACICLOVIR [Concomitant]
     Active Substance: VALACYCLOVIR HYDROCHLORIDE
     Indication: PROPHYLAXIS
     Dosage: UNK
     Route: 065

REACTIONS (7)
  - Hypokalaemia [Unknown]
  - Anaemia [Unknown]
  - Neutropenia [Unknown]
  - Lower respiratory tract infection [Recovered/Resolved with Sequelae]
  - Haemolysis [Unknown]
  - Wheezing [Unknown]
  - Cystitis [Unknown]

NARRATIVE: CASE EVENT DATE: 20160107
